FAERS Safety Report 7386998-0 (Version None)
Quarter: 2011Q1

REPORT INFORMATION
  Report Type: 
  Country: None (occurrence: None)
  Receive Date: 20110331
  Receipt Date: 20110328
  Transmission Date: 20110831
  Serious: Yes (Other)
  Sender: FDA-Public Use
  Company Number: GB-PFIZER INC-2009250611

PATIENT
  Sex: Female

DRUGS (2)
  1. NEURONTIN [Suspect]
     Indication: NEURALGIA
     Dosage: 600MG A DAY
     Dates: start: 20040101
  2. NEURONTIN [Suspect]
     Dosage: 1800MG A DAY
     Dates: start: 20040101

REACTIONS (11)
  - TOOTH LOSS [None]
  - FEELING ABNORMAL [None]
  - SENSORY DISTURBANCE [None]
  - ABDOMINAL DISTENSION [None]
  - HEADACHE [None]
  - PAIN [None]
  - OEDEMA PERIPHERAL [None]
  - CONSTIPATION [None]
  - IMMOBILE [None]
  - MYALGIA [None]
  - HYPOAESTHESIA [None]
